FAERS Safety Report 17502850 (Version 1)
Quarter: 2020Q1

REPORT INFORMATION
  Report Type: Spontaneous
  Country: US (occurrence: US)
  Receive Date: 20200305
  Receipt Date: 20200305
  Transmission Date: 20200409
  Serious: No
  Sender: FDA-Public Use
  Company Number: US-ROCHE-2251165

PATIENT
  Sex: Female

DRUGS (1)
  1. XOLAIR [Suspect]
     Active Substance: OMALIZUMAB
     Indication: PRODUCT USE IN UNAPPROVED INDICATION
     Dosage: ONGOING: YES
     Route: 065

REACTIONS (2)
  - Stomatitis [Recovered/Resolved]
  - Nasopharyngitis [Recovered/Resolved]
